FAERS Safety Report 8698720 (Version 2)
Quarter: 2012Q4

REPORT INFORMATION
  Report Type: 
  Country: BR (occurrence: BR)
  Receive Date: 20120802
  Receipt Date: 20120905
  Transmission Date: 20130627
  Serious: Yes (Death, Hospitalization, Other)
  Sender: FDA-Public Use
  Company Number: BR-PFIZER INC-2012185400

PATIENT
  Age: 52 Year
  Sex: Female

DRUGS (2)
  1. SUTENT [Suspect]
     Indication: RENAL CANCER
     Dosage: cycle 1
     Route: 048
     Dates: start: 20120705
  2. SUTENT [Suspect]
     Indication: METASTASES TO CENTRAL NERVOUS SYSTEM

REACTIONS (6)
  - Toxicity to various agents [Fatal]
  - Dermatitis exfoliative [Unknown]
  - Coma [Unknown]
  - Skin haemorrhage [Unknown]
  - Palmar-plantar erythrodysaesthesia syndrome [Unknown]
  - Rash generalised [Unknown]
